FAERS Safety Report 7072004-4 (Version None)
Quarter: 2010Q4

REPORT INFORMATION
  Report Type: 
  Country: None (occurrence: None)
  Receive Date: 20101029
  Receipt Date: 20091118
  Transmission Date: 20110411
  Serious: No
  Sender: FDA-Public Use
  Company Number: A0817749A

PATIENT
  Sex: Female

DRUGS (14)
  1. ADVAIR DISKUS 100/50 [Suspect]
     Indication: ASTHMA
     Dosage: 1PUFF TWICE PER DAY
     Route: 055
     Dates: start: 20040101
  2. ACTONEL [Concomitant]
  3. MAGIC MOUTHWASH [Concomitant]
  4. NIACIN [Concomitant]
  5. SENNA [Concomitant]
  6. MUCINEX [Concomitant]
  7. ASPIRIN [Concomitant]
  8. OSCAL [Concomitant]
  9. ASCORBIC ACID [Concomitant]
  10. GARLIC SUPPLEMENT [Concomitant]
  11. COD LIVER OIL [Concomitant]
  12. MULTIVITAMIN [Concomitant]
  13. WATER PILL [Concomitant]
  14. ALBUTEROL WITH NEBULIZER [Concomitant]

REACTIONS (5)
  - DYSPHONIA [None]
  - EATING DISORDER [None]
  - GLOSSODYNIA [None]
  - ORAL PAIN [None]
  - TONGUE COATED [None]
